FAERS Safety Report 7509236-4 (Version None)
Quarter: 2011Q2

REPORT INFORMATION
  Report Type: 
  Country: None (occurrence: None)
  Receive Date: 20110527
  Receipt Date: 20110523
  Transmission Date: 20111010
  Serious: Yes (Hospitalization)
  Sender: FDA-Public Use
  Company Number: FR-ROCHE-724569

PATIENT
  Sex: Female
  Weight: 48 kg

DRUGS (11)
  1. RIBAVIRIN [Suspect]
     Dosage: FREQUENCY: NOT PROVIDED
     Route: 048
     Dates: start: 20091015
  2. RIBAVIRIN [Suspect]
     Dosage: FREQUENCY: NOT PROVIDED DOSE REDUCED FROM 4 TABLET TO 3 TABLET
     Route: 048
  3. NOCTRAN [Concomitant]
  4. ATARAX [Concomitant]
  5. VOLTAREN [Concomitant]
     Dosage: FREQUENCY:QD
  6. PEGINTERFERON ALFA-2A [Suspect]
     Route: 058
     Dates: start: 20091014
  7. FENOFIBRATE [Concomitant]
     Route: 048
  8. ACETAMINOPHEN [Concomitant]
     Dates: start: 20091014
  9. ATORVASTATIN [Concomitant]
  10. RIBAVIRIN [Suspect]
     Dosage: DOSAGE REDUCED.
     Route: 048
  11. PEGINTERFERON ALFA-2A [Suspect]
     Dosage: 1 INJECTION PER WEEK.
     Route: 058
     Dates: start: 20091014

REACTIONS (4)
  - GENERAL PHYSICAL HEALTH DETERIORATION [None]
  - ANAEMIA [None]
  - NORMOCHROMIC NORMOCYTIC ANAEMIA [None]
  - PYREXIA [None]
